FAERS Safety Report 25601952 (Version 1)
Quarter: 2025Q3

REPORT INFORMATION
  Report Type: Spontaneous
  Country: US (occurrence: US)
  Receive Date: 20250724
  Receipt Date: 20250724
  Transmission Date: 20251021
  Serious: No
  Sender: PFIZER
  Company Number: US-PFIZER INC-PV202500088079

PATIENT
  Age: 61 Year
  Sex: Female

DRUGS (3)
  1. IBRANCE [Suspect]
     Active Substance: PALBOCICLIB
     Indication: Breast cancer metastatic
  2. ITOVEBI [Concomitant]
     Active Substance: INAVOLISIB
  3. FULVESTRANT [Concomitant]
     Active Substance: FULVESTRANT

REACTIONS (13)
  - Dyspnoea [Unknown]
  - Vomiting [Unknown]
  - Abdominal pain upper [Unknown]
  - Blood electrolytes decreased [Unknown]
  - Blood potassium decreased [Unknown]
  - Pain [Unknown]
  - Malaise [Unknown]
  - Blood sodium decreased [Unknown]
  - Blood magnesium decreased [Unknown]
  - Blood chloride decreased [Unknown]
  - Muscle spasms [Unknown]
  - Headache [Unknown]
  - Insomnia [Unknown]
